FAERS Safety Report 4862867-2 (Version None)
Quarter: 2005Q4

REPORT INFORMATION
  Report Type: 
  Country: None (occurrence: None)
  Receive Date: 20051221
  Receipt Date: 20051207
  Transmission Date: 20060501
  Serious: Yes (Hospitalization, Other)
  Sender: FDA-Public Use
  Company Number: US-NOVOPROD-249169

PATIENT
  Sex: Male

DRUGS (1)
  1. NOVOSEVEN [Suspect]
     Indication: HAEMOPHILIA A WITH ANTI FACTOR VIII
     Dosage: UNKNOWN
     Route: 042

REACTIONS (3)
  - HAEMORRHAGIC STROKE [None]
  - INTRACARDIAC THROMBUS [None]
  - THROMBOTIC STROKE [None]
